FAERS Safety Report 5514476-X (Version None)
Quarter: 2007Q4

REPORT INFORMATION
  Report Type: 
  Country: None (occurrence: None)
  Receive Date: 20071113
  Receipt Date: 20071109
  Transmission Date: 20080405
  Serious: Yes (Death, Hospitalization)
  Sender: FDA-Public Use
  Company Number: US-BAXTER-2007BH007260

PATIENT
  Age: 78 Year
  Sex: Male
  Weight: 98 kg

DRUGS (2)
  1. DIANEAL [Suspect]
     Indication: RENAL FAILURE CHRONIC
     Route: 033
     Dates: start: 20060401, end: 20070911
  2. DIANEAL [Suspect]
     Indication: RENAL FAILURE CHRONIC
     Route: 033
     Dates: start: 20060401, end: 20070911

REACTIONS (3)
  - AZOTAEMIA [None]
  - HYPERGLYCAEMIA [None]
  - PERITONITIS BACTERIAL [None]
